FAERS Safety Report 9262062 (Version 1)
Quarter: 2013Q2

REPORT INFORMATION
  Report Type: Spontaneous
  Country: FR (occurrence: FR)
  Receive Date: 20130430
  Receipt Date: 20130430
  Transmission Date: 20140414
  Serious: Yes (Life-Threatening, Hospitalization, Other)
  Sender: FDA-Public Use
  Company Number: FR-BRISTOL-MYERS SQUIBB COMPANY-18814087

PATIENT
  Age: 67 Year
  Sex: Male

DRUGS (3)
  1. COUMADIN TABS 2 MG [Suspect]
     Dosage: 1DF: 1.5 TABLET PER DAY?LAST DOSE:13JAN2013?17JAN2013:2MG/DAY
     Route: 048
     Dates: start: 20130110
  2. KARDEGIC [Suspect]
     Dosage: 1 SACHET PER DAY
     Route: 048
  3. PYOSTACINE [Suspect]
     Indication: SUBCUTANEOUS ABSCESS
     Route: 048
     Dates: start: 20130110, end: 20130113

REACTIONS (7)
  - Gastrointestinal haemorrhage [Recovered/Resolved]
  - Haematemesis [Recovered/Resolved]
  - International normalised ratio increased [Recovered/Resolved]
  - Abdominal pain upper [Recovered/Resolved]
  - Duodenitis [Recovered/Resolved]
  - Oesophageal ulcer [Recovered/Resolved]
  - Overdose [Unknown]
